FAERS Safety Report 7033930-5 (Version None)
Quarter: 2010Q4

REPORT INFORMATION
  Report Type: 
  Country: None (occurrence: None)
  Receive Date: 20101005
  Receipt Date: 20100920
  Transmission Date: 20110411
  Serious: Yes (Other)
  Sender: FDA-Public Use
  Company Number: AUR-APL-2010-02363

PATIENT
  Sex: Male

DRUGS (1)
  1. FINASTERIDE [Suspect]
     Dosage: 5MG

REACTIONS (2)
  - EJACULATION FAILURE [None]
  - SEMEN VOLUME DECREASED [None]
